FAERS Safety Report 17688647 (Version 1)
Quarter: 2020Q2

REPORT INFORMATION
  Report Type: Spontaneous
  Country: FR (occurrence: FR)
  Receive Date: 20200421
  Receipt Date: 20200421
  Transmission Date: 20200714
  Serious: Yes (Other)
  Sender: FDA-Public Use
  Company Number: FR-JNJFOC-20200416930

PATIENT
  Age: 84 Year
  Sex: Female
  Weight: 59 kg

DRUGS (3)
  1. HALDOL [Suspect]
     Active Substance: HALOPERIDOL
     Indication: PRODUCT ADMINISTRATION ERROR
     Route: 048
     Dates: start: 20200329, end: 20200329
  2. SERESTA [Suspect]
     Active Substance: OXAZEPAM
     Indication: PRODUCT ADMINISTRATION ERROR
     Route: 048
     Dates: start: 20200329, end: 20200329
  3. DOLIPRANE [Suspect]
     Active Substance: ACETAMINOPHEN
     Indication: PRODUCT ADMINISTRATION ERROR
     Route: 048
     Dates: start: 20200329, end: 20200329

REACTIONS (4)
  - Blood pressure decreased [Recovered/Resolved]
  - Product administration error [Recovered/Resolved]
  - Somnolence [Recovered/Resolved]
  - Wrong dose [Recovered/Resolved]

NARRATIVE: CASE EVENT DATE: 20200329
